FAERS Safety Report 9867862 (Version 2)
Quarter: 2014Q1

REPORT INFORMATION
  Report Type: Spontaneous
  Country: US (occurrence: US)
  Receive Date: 20140204
  Receipt Date: 20140307
  Transmission Date: 20141002
  Serious: Yes (Hospitalization)
  Sender: FDA-Public Use
  Company Number: US-FRI-1000053384

PATIENT
  Age: 84 Year
  Sex: Female
  Weight: 54.8 kg

DRUGS (13)
  1. LINZESS [Suspect]
     Indication: CONSTIPATION
     Dosage: 145 MCG
     Route: 048
     Dates: start: 201401, end: 201401
  2. LINZESS [Suspect]
     Indication: ABDOMINAL PAIN
  3. XARELTO [Concomitant]
     Indication: ATRIAL FIBRILLATION
     Dosage: 15 MG
     Route: 048
  4. AMIODARONE [Concomitant]
     Indication: ATRIAL FIBRILLATION
     Dosage: 200 MG
     Route: 048
  5. PREDNISONE [Concomitant]
     Indication: RHEUMATOID ARTHRITIS
     Dosage: 5 MG
     Route: 048
  6. LEVOXYL [Concomitant]
     Indication: HYPOTHYROIDISM
     Dosage: 50 MCG ALTERNATING WITH 75 MCG EVERY OTHER DAY
     Route: 048
  7. DYAZIDE [Concomitant]
     Dosage: 37.5 MG/25 MG (1 CAPSULE) DAILY
     Route: 048
  8. METHOTREXATE [Concomitant]
     Indication: RHEUMATOID ARTHRITIS
     Dosage: 2.5 MG
     Route: 048
  9. PRILOSEC [Concomitant]
     Dosage: 20 MG
     Route: 048
  10. VITAMIN D2 [Concomitant]
     Dosage: 50,000 UNITS
     Route: 048
  11. METOPROLOL [Concomitant]
     Dosage: 50 MG
     Route: 048
  12. FISH OIL [Concomitant]
     Dosage: 1000 MG
     Route: 048
  13. CALCIUM [Concomitant]
     Dosage: 1800 MG
     Route: 048

REACTIONS (8)
  - Colitis ischaemic [Recovered/Resolved]
  - Weight decreased [Unknown]
  - Renal failure acute [Recovered/Resolved]
  - Off label use [Recovered/Resolved]
  - Nausea [Unknown]
  - Asthenia [Unknown]
  - Diverticulum [Unknown]
  - Haemorrhoids [Unknown]
